FAERS Safety Report 14731500 (Version 1)
Quarter: 2018Q2

REPORT INFORMATION
  Report Type: Spontaneous
  Country: US (occurrence: US)
  Receive Date: 20180407
  Receipt Date: 20180407
  Transmission Date: 20180711
  Serious: No
  Sender: FDA-Public Use
  Company Number: US-TEVA-2018-US-878020

PATIENT
  Sex: Male

DRUGS (1)
  1. DOXYCYCLINE. [Suspect]
     Active Substance: DOXYCYCLINE
     Indication: STAPHYLOCOCCAL INFECTION
     Dosage: 200 MILLIGRAM DAILY;
     Route: 065

REACTIONS (2)
  - Intervertebral disc protrusion [Unknown]
  - Back pain [Unknown]
